FAERS Safety Report 25187453 (Version 1)
Quarter: 2025Q2

REPORT INFORMATION
  Report Type: Spontaneous
  Country: US (occurrence: US)
  Receive Date: 20250411
  Receipt Date: 20250411
  Transmission Date: 20250717
  Serious: Yes (Other)
  Sender: HIKMA
  Company Number: US-HIKMA PHARMACEUTICALS USA INC.-US-H14001-25-03104

PATIENT
  Age: 32 Year
  Sex: Male

DRUGS (6)
  1. BUPRENORPHINE [Suspect]
     Active Substance: BUPRENORPHINE
     Indication: Product used for unknown indication
     Route: 065
  2. HYDROCODONE [Suspect]
     Active Substance: HYDROCODONE
     Indication: Product used for unknown indication
     Route: 065
  3. CANNABIS SATIVA SUBSP. INDICA TOP [Suspect]
     Active Substance: CANNABIS SATIVA SUBSP. INDICA TOP
     Indication: Product used for unknown indication
     Route: 065
  4. METHAMPHETAMINE HYDROCHLORIDE [Suspect]
     Active Substance: METHAMPHETAMINE HYDROCHLORIDE
     Indication: Product used for unknown indication
     Route: 065
  5. OXYCODONE [Suspect]
     Active Substance: OXYCODONE
     Indication: Product used for unknown indication
     Route: 065
  6. XANAX [Suspect]
     Active Substance: ALPRAZOLAM
     Indication: Product used for unknown indication
     Route: 065

REACTIONS (6)
  - Gait disturbance [Unknown]
  - Dysarthria [Unknown]
  - Miosis [Unknown]
  - Toxicity to various agents [Unknown]
  - Drug abuse [Unknown]
  - Drug diversion [Unknown]
